FAERS Safety Report 18676358 (Version 1)
Quarter: 2020Q4

REPORT INFORMATION
  Report Type: Spontaneous
  Country: US (occurrence: US)
  Receive Date: 20201229
  Receipt Date: 20201229
  Transmission Date: 20210114
  Serious: Yes (Other)
  Sender: FDA-Public Use
  Company Number: None

PATIENT
  Age: 46 Year
  Sex: Female
  Weight: 103.05 kg

DRUGS (6)
  1. LOVENOX [Concomitant]
     Active Substance: ENOXAPARIN SODIUM
     Dates: start: 20201207, end: 20201212
  2. REMDESIVIR. [Suspect]
     Active Substance: REMDESIVIR
     Indication: COVID-19
     Route: 042
     Dates: start: 20201204, end: 20201207
  3. DECADRON [Concomitant]
     Active Substance: DEXAMETHASONE
     Dates: start: 20201203, end: 20201212
  4. LASIX [Concomitant]
     Active Substance: FUROSEMIDE
     Dates: start: 20201204, end: 20201211
  5. ZITHROMAX [Concomitant]
     Active Substance: AZITHROMYCIN DIHYDRATE
     Dates: start: 20201130, end: 20201204
  6. RED BLOOD CELL TRANSFUSION [Concomitant]
     Dates: start: 20201204, end: 20201204

REACTIONS (2)
  - Bradycardia [None]
  - Therapy interrupted [None]

NARRATIVE: CASE EVENT DATE: 20201205
